FAERS Safety Report 10459931 (Version 2)
Quarter: 2015Q1

REPORT INFORMATION
  Report Type: Spontaneous
  Country: US (occurrence: US)
  Receive Date: 20140917
  Receipt Date: 20150316
  Transmission Date: 20150720
  Serious: No
  Sender: FDA-Public Use
  Company Number: US-009507513-1409USA006781

PATIENT
  Sex: Male

DRUGS (1)
  1. PROPECIA [Suspect]
     Active Substance: FINASTERIDE
     Indication: ALOPECIA
     Dosage: 1 MG, QD
     Route: 048
     Dates: start: 20040213, end: 20080719

REACTIONS (11)
  - Blood testosterone decreased [Unknown]
  - Sexual dysfunction [Not Recovered/Not Resolved]
  - Cluster headache [Unknown]
  - Erectile dysfunction [Not Recovered/Not Resolved]
  - Semen volume decreased [Unknown]
  - Depression [Unknown]
  - Anorgasmia [Unknown]
  - Facial bones fracture [Unknown]
  - Disturbance in sexual arousal [Unknown]
  - Anxiety [Unknown]
  - Libido decreased [Unknown]

NARRATIVE: CASE EVENT DATE: 2008
